FAERS Safety Report 11196128 (Version 1)
Quarter: 2015Q2

REPORT INFORMATION
  Report Type: Spontaneous
  Country: JP (occurrence: JP)
  Receive Date: 20150617
  Receipt Date: 20150617
  Transmission Date: 20150821
  Serious: Yes (Life-Threatening, Other)
  Sender: FDA-Public Use
  Company Number: JP-EISAI MEDICAL RESEARCH-EC-2015-007682

PATIENT
  Age: 78 Year
  Sex: Male
  Weight: 50 kg

DRUGS (3)
  1. FLORID [Interacting]
     Active Substance: MICONAZOLE
     Indication: OESOPHAGEAL CANDIDIASIS
     Route: 048
     Dates: start: 20150430, end: 20150514
  2. WARFARIN [Interacting]
     Active Substance: WARFARIN
     Indication: ATRIAL FIBRILLATION
     Route: 048
     Dates: start: 20121204
  3. RABECURE [Suspect]
     Active Substance: RABEPRAZOLE SODIUM
     Indication: HELICOBACTER INFECTION
     Route: 048
     Dates: start: 20150518, end: 20150521

REACTIONS (3)
  - Intra-abdominal haemorrhage [Recovered/Resolved]
  - International normalised ratio increased [Recovering/Resolving]
  - Drug interaction [Recovered/Resolved]

NARRATIVE: CASE EVENT DATE: 20150522
